FAERS Safety Report 6799689-1 (Version None)
Quarter: 2010Q2

REPORT INFORMATION
  Report Type: 
  Country: None (occurrence: None)
  Receive Date: 20100624
  Receipt Date: 20100408
  Transmission Date: 20101027
  Serious: Yes (Other)
  Sender: FDA-Public Use
  Company Number: 8037729

PATIENT
  Sex: Male
  Weight: 3.5381 kg

DRUGS (4)
  1. KEPPRA [Suspect]
     Dosage: (1000 MG TRANSPLACENTAL)
     Route: 064
  2. LAMOTRIGINE [Concomitant]
  3. FOLIC ACID [Concomitant]
  4. PRENATAL VITAMINS [Concomitant]

REACTIONS (2)
  - CONGENITAL HYDRONEPHROSIS [None]
  - MATERNAL DRUGS AFFECTING FOETUS [None]
